FAERS Safety Report 16875485 (Version 1)
Quarter: 2019Q4

REPORT INFORMATION
  Report Type: Spontaneous
  Country: CN (occurrence: CN)
  Receive Date: 20191002
  Receipt Date: 20191002
  Transmission Date: 20200122
  Serious: Yes (Death, Hospitalization)
  Sender: FDA-Public Use
  Company Number: CN-TWI PHARMACEUTICAL, INC-2019SCTW000021

PATIENT

DRUGS (3)
  1. LABETALOL HYDROCHLORIDE TABLETS, USP [Suspect]
     Active Substance: LABETALOL HYDROCHLORIDE
     Dosage: 800 MG, QD, 3 WEEKS BEFORE DELIVERY
     Route: 064
  2. LABETALOL HYDROCHLORIDE TABLETS, USP [Suspect]
     Active Substance: LABETALOL HYDROCHLORIDE
     Indication: PRODUCT USED FOR UNKNOWN INDICATION
     Dosage: 600 MG, QD FOR 1 YEAR AND PREGNANCY
     Route: 064
  3. NIFEDIPINE. [Concomitant]
     Active Substance: NIFEDIPINE
     Indication: PRODUCT USED FOR UNKNOWN INDICATION
     Dosage: 30 MG, QD, INTERMITTENT 3 WEEKS BEFORE DELIVERY
     Route: 064

REACTIONS (8)
  - Circulatory failure neonatal [Unknown]
  - Sudden cardiac death [Fatal]
  - Premature baby [Unknown]
  - Drug withdrawal syndrome neonatal [Fatal]
  - Foetal exposure during pregnancy [Unknown]
  - Hypoalbuminaemia [Unknown]
  - Foetal acidosis [Unknown]
  - Hypotension [Unknown]
